FAERS Safety Report 9536025 (Version 1)
Quarter: 2013Q2

REPORT INFORMATION
  Report Type: Spontaneous
  Country: US (occurrence: None)
  Receive Date: 20130507
  Receipt Date: 20130507
  Transmission Date: 20140414
  Serious: No
  Sender: FDA-Public Use
  Company Number: PHEH2012US025366

PATIENT
  Age: 66 Year
  Sex: Female

DRUGS (7)
  1. AFINITOR (RAD) [Suspect]
     Indication: BREAST CANCER
     Route: 048
     Dates: start: 20121212
  2. AROMASIN (EXEMESTANE) [Suspect]
     Indication: BREAST CANCER
     Route: 048
     Dates: start: 201211
  3. MULTIVITAMINS (ASCORBIC ACID, ERGOCALCIFEROL, FOLIC ACID, NICOTINAMIDE, PANTHENOL, RETINOL, RIBOFLAVIN, THIAMINE HYDROCHLORIDE) [Concomitant]
  4. POTASSIUM (POTASSIUM) [Concomitant]
  5. HYDROCHLOROTHIAZIDE (HYDROCHLOROTHIAZIDE) [Concomitant]
  6. OMEGA 3 FISH OIL (FISH OIL) [Concomitant]
  7. NORVASC (AMLODIPINE BESILATE) [Suspect]

REACTIONS (3)
  - Wrong technique in drug usage process [None]
  - Stomatitis [None]
  - Hypophagia [None]
